FAERS Safety Report 9129995 (Version 1)
Quarter: 2013Q1

REPORT INFORMATION
  Report Type: Spontaneous
  Country: US (occurrence: US)
  Receive Date: 20130228
  Receipt Date: 20130228
  Transmission Date: 20140127
  Serious: No
  Sender: FDA-Public Use
  Company Number: US-ABBOTT-12P-163-1011171-00

PATIENT
  Age: 60 Year
  Sex: Male
  Weight: 90.8 kg

DRUGS (1)
  1. ANDROGEL [Suspect]
     Indication: BLOOD TESTOSTERONE DECREASED
     Dosage: 4 PUMPS DAILY TO UPPER ARMS AND SHOULDERS

REACTIONS (5)
  - Arthropathy [Recovering/Resolving]
  - Tendon pain [Recovering/Resolving]
  - Arthralgia [Recovering/Resolving]
  - Tendonitis [Recovering/Resolving]
  - Joint effusion [Recovering/Resolving]
